FAERS Safety Report 9298772 (Version 2)
Quarter: 2013Q4

REPORT INFORMATION
  Report Type: Spontaneous
  Country: US (occurrence: None)
  Receive Date: 20121227
  Receipt Date: 20131226
  Transmission Date: 20140711
  Serious: Yes (Other)
  Sender: FDA-Public Use
  Company Number: PHEH2012US001720

PATIENT
  Age: 7 Year
  Sex: Male
  Weight: 22.4 kg

DRUGS (1)
  1. AFINITOR [Suspect]
     Indication: TUBEROUS SCLEROSIS
     Dosage: 2.5 MG, QD (IN THE MORNING), ORAL
     Route: 048
     Dates: start: 20120112

REACTIONS (10)
  - Blood urea increased [None]
  - Malaise [None]
  - Oropharyngeal pain [None]
  - Pyrexia [None]
  - Ear infection [None]
  - Blood cholesterol increased [None]
  - Low density lipoprotein increased [None]
  - Therapeutic response decreased [None]
  - Rash [None]
  - Drug level decreased [None]
